FAERS Safety Report 5676504-0 (Version None)
Quarter: 2008Q2

REPORT INFORMATION
  Report Type: 
  Country: None (occurrence: None)
  Receive Date: 20080311
  Receipt Date: 20071212
  Transmission Date: 20081010
  Serious: No
  Sender: FDA-Public Use
  Company Number: 002#2#2007-00361

PATIENT
  Age: 72 Year
  Sex: Male
  Weight: 86.1834 kg

DRUGS (4)
  1. NEUPRO [Suspect]
     Indication: PARKINSON'S DISEASE
     Dosage: 6MG/24H,1 IN 1 D,TRANSDERMAL; 2MG/24H,1 IN 1D, TRANSDERMAL
     Route: 062
     Dates: start: 20070801, end: 20070901
  2. NEUPRO [Suspect]
     Indication: PARKINSON'S DISEASE
     Dosage: 6MG/24H,1 IN 1 D,TRANSDERMAL; 2MG/24H,1 IN 1D, TRANSDERMAL
     Route: 062
     Dates: start: 20070901, end: 20070901
  3. AZILECT [Concomitant]
  4. SINEMET [Concomitant]

REACTIONS (2)
  - APPLICATION SITE PRURITUS [None]
  - APPLICATION SITE URTICARIA [None]
